FAERS Safety Report 22306962 (Version 1)
Quarter: 2023Q2

REPORT INFORMATION
  Report Type: Spontaneous
  Country: US (occurrence: None)
  Receive Date: 20230511
  Receipt Date: 20230511
  Transmission Date: 20230722
  Serious: No
  Sender: FDA-Public Use
  Company Number: US-ROCHE-3065623

PATIENT
  Age: 32 Year
  Sex: Male

DRUGS (1)
  1. OCREVUS [Suspect]
     Active Substance: OCRELIZUMAB
     Indication: Relapsing multiple sclerosis
     Dosage: ONGOING:NO
     Route: 042
     Dates: start: 202106, end: 202201

REACTIONS (2)
  - Rash [Unknown]
  - Throat tightness [Unknown]

NARRATIVE: CASE EVENT DATE: 20220101
